FAERS Safety Report 5508717-2 (Version None)
Quarter: 2007Q4

REPORT INFORMATION
  Report Type: 
  Country: None (occurrence: None)
  Receive Date: 20071105
  Receipt Date: 20071024
  Transmission Date: 20080405
  Serious: Yes (Other)
  Sender: FDA-Public Use
  Company Number: 2007332591

PATIENT
  Age: 40 Year
  Sex: Female

DRUGS (1)
  1. LISTERINE AGENT COOL BLUE BUBBLE BLAST (NO ACTIVE INGREDIENT) [Suspect]
     Indication: DENTAL DISORDER PROPHYLAXIS
     Dosage: 10 ML 1 TIME PER DAY (1 IN 1 D), ORAL
     Route: 048
     Dates: start: 20070101, end: 20070101

REACTIONS (1)
  - GINGIVITIS [None]
